FAERS Safety Report 26073449 (Version 1)
Quarter: 2025Q4

REPORT INFORMATION
  Report Type: Spontaneous
  Country: EU (occurrence: EU)
  Receive Date: 20251121
  Receipt Date: 20251121
  Transmission Date: 20260118
  Serious: Yes (Death, Other)
  Sender: ALKEM
  Company Number: EU-ALKEM LABORATORIES LIMITED-IT-ALKEM-2025-12467

PATIENT
  Age: 66 Year
  Sex: Male

DRUGS (1)
  1. TACROLIMUS [Suspect]
     Active Substance: TACROLIMUS
     Indication: Immunosuppressant drug therapy
     Dosage: UNK
     Route: 065

REACTIONS (3)
  - Castleman^s disease [Fatal]
  - Human herpesvirus 8 infection [Fatal]
  - Kaposi sarcoma inflammatory cytokine syndrome [Fatal]
